FAERS Safety Report 9169597 (Version 2)
Quarter: 2013Q4

REPORT INFORMATION
  Report Type: Spontaneous
  Country: FR (occurrence: FR)
  Receive Date: 20130318
  Receipt Date: 20131023
  Transmission Date: 20140711
  Serious: Yes (Hospitalization, Disabling, Other)
  Sender: FDA-Public Use
  Company Number: FR-PFIZER INC-2013082836

PATIENT
  Age: 62 Year
  Sex: Male
  Weight: 69 kg

DRUGS (15)
  1. EFFEXOR LP [Suspect]
     Indication: MAJOR DEPRESSION
     Dosage: 75 MG, DAILY
     Route: 048
     Dates: end: 20130204
  2. KARDEGIC [Suspect]
     Indication: THROMBOSIS PROPHYLAXIS
     Dosage: 75 MG, DAILY
     Route: 048
     Dates: end: 20130204
  3. LOVENOX [Suspect]
     Indication: THROMBOSIS PROPHYLAXIS
     Dosage: 4000 IU, 1X/DAY
     Route: 058
     Dates: end: 20130204
  4. CORTANCYL [Concomitant]
     Dosage: 6 MG PER DAY
  5. PROGRAF [Concomitant]
     Dosage: 2.5 MG, 2X/DAY
  6. CELLCEPT [Concomitant]
     Dosage: 1000 MG, 2X/DAY
  7. EUPANTOL [Concomitant]
     Dosage: 20 MG, DAILY
  8. BACTRIM FORTE [Concomitant]
     Dosage: 1 TABLET 3 DAYS/WEEK
  9. CALCIDOSE VITAMINE D [Concomitant]
     Dosage: TWICE A DAY
  10. AZITHROMYCIN [Concomitant]
     Dosage: 250 MG, UNK
  11. CRESTOR [Concomitant]
     Dosage: 10 MG, 2X/DAY
  12. ROVALCYTE [Concomitant]
     Dosage: 2X450 MG IN MORNING
  13. UVEDOSE [Concomitant]
     Dosage: 1 DF, DAILY
  14. FUNGIZONE [Concomitant]
     Dosage: 3 DF, DAILY
  15. VENLAFAXINE HYDROCHLORIDE [Concomitant]
     Dosage: 75 MG, DAILY

REACTIONS (3)
  - Hemiplegia [Recovered/Resolved with Sequelae]
  - Cerebral haematoma [Recovered/Resolved with Sequelae]
  - Pancytopenia [Unknown]
